FAERS Safety Report 14731697 (Version 3)
Quarter: 2018Q2

REPORT INFORMATION
  Report Type: Report from Study
  Country: US (occurrence: US)
  Receive Date: 20180407
  Receipt Date: 20180510
  Transmission Date: 20180711
  Serious: Yes (Other)
  Sender: FDA-Public Use
  Company Number: PHEH2018US013137

PATIENT
  Sex: Female

DRUGS (1)
  1. SANDOSTATIN LAR DEPOT [Suspect]
     Active Substance: OCTREOTIDE ACETATE
     Indication: CARCINOID TUMOUR
     Dosage: UNK
     Route: 065
     Dates: end: 201605

REACTIONS (5)
  - Second primary malignancy [Unknown]
  - Diarrhoea [Unknown]
  - Ovarian cancer [Unknown]
  - Visual impairment [Unknown]
  - Memory impairment [Unknown]
